FAERS Safety Report 10881516 (Version 2)
Quarter: 2015Q1

REPORT INFORMATION
  Report Type: Report from Study
  Country: GB (occurrence: GB)
  Receive Date: 20150303
  Receipt Date: 20150311
  Transmission Date: 20150721
  Serious: Yes (Other)
  Sender: FDA-Public Use
  Company Number: GB-AMGEN-GBRNI2015019374

PATIENT
  Age: 47 Year
  Sex: Female
  Weight: 89 kg

DRUGS (4)
  1. FOLIC ACID. [Concomitant]
     Active Substance: FOLIC ACID
     Dosage: UNK
     Dates: start: 20090630
  2. ETANERCEPT [Suspect]
     Active Substance: ETANERCEPT
     Indication: PSORIASIS
     Dosage: 50 MG, QWK
     Route: 065
     Dates: start: 20090702, end: 20100128
  3. DERMOVATE [Concomitant]
     Active Substance: CLOBETASOL
     Dosage: UNK
     Dates: start: 20090604
  4. TRIMOVATE                          /00456501/ [Concomitant]
     Dosage: UNK
     Dates: start: 20120105

REACTIONS (2)
  - Drug ineffective [Unknown]
  - Breast cancer [Unknown]
